FAERS Safety Report 22961436 (Version 3)
Quarter: 2023Q4

REPORT INFORMATION
  Report Type: Spontaneous
  Country: JP (occurrence: JP)
  Receive Date: 20230920
  Receipt Date: 20231120
  Transmission Date: 20240109
  Serious: No
  Sender: FDA-Public Use
  Company Number: JP-PFIZER INC-PV202300147622

PATIENT

DRUGS (1)
  1. NGENLA [Suspect]
     Active Substance: SOMATROGON-GHLA
     Dosage: 24 MG, WEEKLY
     Route: 058

REACTIONS (3)
  - Injection site pain [Unknown]
  - Swelling [Unknown]
  - Wrong technique in device usage process [Unknown]
